FAERS Safety Report 21918291 (Version 1)
Quarter: 2023Q1

REPORT INFORMATION
  Report Type: Spontaneous
  Country: US (occurrence: US)
  Receive Date: 20230127
  Receipt Date: 20230127
  Transmission Date: 20230418
  Serious: No
  Sender: FDA-Public Use
  Company Number: US-BIOVITRUM-2023US01327

PATIENT
  Age: 0 Year
  Sex: Male
  Weight: 9 kg

DRUGS (7)
  1. SYNAGIS [Suspect]
     Active Substance: PALIVIZUMAB
     Indication: Ventricular septal defect
     Dosage: 100 MG SDV/INJ PF 1 ML 1^S
  2. SYNAGIS [Suspect]
     Active Substance: PALIVIZUMAB
     Indication: Double inlet left ventricle
  3. SYNAGIS [Suspect]
     Active Substance: PALIVIZUMAB
     Indication: Corrected transposition of great vessels
  4. SYNAGIS [Suspect]
     Active Substance: PALIVIZUMAB
     Indication: Illness
  5. FAMOTIDINE [Concomitant]
     Active Substance: FAMOTIDINE
     Dosage: 40MG/5ML SUSP RECON
  6. D-VI-SOL [Concomitant]
     Dosage: 10(400)/ML DROPS
  7. ASPIRIN [Concomitant]
     Active Substance: ASPIRIN
     Dosage: 81 MG TAB CHEW

REACTIONS (1)
  - Pyrexia [Recovered/Resolved]

NARRATIVE: CASE EVENT DATE: 20230120
